FAERS Safety Report 15608335 (Version 2)
Quarter: 2018Q4

REPORT INFORMATION
  Report Type: Spontaneous
  Country: FR (occurrence: FR)
  Receive Date: 20181112
  Receipt Date: 20181114
  Transmission Date: 20190205
  Serious: Yes (Other)
  Sender: FDA-Public Use
  Company Number: FR-MYLANLABS-2018M1084850

PATIENT
  Age: 46 Year
  Sex: Female

DRUGS (10)
  1. LAMICTAL [Suspect]
     Active Substance: LAMOTRIGINE
     Indication: PRODUCT USED FOR UNKNOWN INDICATION
     Dosage: 35 MG, UNK
  2. LAMOTRIGINE. [Concomitant]
     Active Substance: LAMOTRIGINE
     Indication: PRODUCT USED FOR UNKNOWN INDICATION
     Dosage: 50 MG, QD,(50 MG, 1D)
     Route: 048
     Dates: start: 201707
  3. VENLAFAXINE ALMUS [Concomitant]
     Indication: DEPRESSION
     Dosage: 37.5 MG, UNK
     Route: 048
  4. LAMICTAL [Suspect]
     Active Substance: LAMOTRIGINE
     Dosage: 100 MG, UNK
     Route: 065
  5. VENLAFAXINE ALMUS [Concomitant]
     Indication: PSYCHIATRIC SYMPTOM
  6. LAMICTAL [Suspect]
     Active Substance: LAMOTRIGINE
     Dosage: 50 MG, UNK
     Route: 065
  7. LAMOTRIGINE. [Concomitant]
     Active Substance: LAMOTRIGINE
     Dosage: 100 MG, QD,(100 MG, 1D)
     Route: 048
     Dates: start: 201707
  8. LAMOTRIGINE. [Suspect]
     Active Substance: LAMOTRIGINE
     Indication: PRODUCT USED FOR UNKNOWN INDICATION
     Dosage: 100 MG, UNK
     Route: 048
  9. LAMOTRIGINE. [Suspect]
     Active Substance: LAMOTRIGINE
     Dosage: 100 MG, QD
     Route: 048
     Dates: start: 20180417, end: 20180418
  10. SELINCRO [Concomitant]
     Active Substance: NALMEFENE HYDROCHLORIDE DIHYDRATE
     Indication: ALCOHOLISM
     Dosage: UNK UNK, QD
     Route: 048
     Dates: start: 20180319, end: 20180416

REACTIONS (4)
  - Product dispensing error [Recovered/Resolved]
  - Stress [Recovered/Resolved]
  - Accidental overdose [Unknown]
  - Product complaint [Unknown]

NARRATIVE: CASE EVENT DATE: 20180417
